FAERS Safety Report 7888561-1 (Version None)
Quarter: 2011Q4

REPORT INFORMATION
  Report Type: 
  Country: None (occurrence: None)
  Receive Date: 20111103
  Receipt Date: 20111027
  Transmission Date: 20120403
  Serious: Yes (Hospitalization)
  Sender: FDA-Public Use
  Company Number: GB-ROCHE-1008103

PATIENT

DRUGS (2)
  1. LUCENTIS [Suspect]
     Indication: PRODUCT USED FOR UNKNOWN INDICATION
     Route: 050
  2. LUCENTIS [Suspect]
     Dosage: THIRD INJECTION
     Dates: start: 20110808

REACTIONS (2)
  - ASTHMA [None]
  - ARTHRITIS [None]
